FAERS Safety Report 20736074 (Version 1)
Quarter: 2022Q2

REPORT INFORMATION
  Report Type: Spontaneous
  Country: CN (occurrence: CN)
  Receive Date: 20220421
  Receipt Date: 20220421
  Transmission Date: 20220720
  Serious: No
  Sender: FDA-Public Use
  Company Number: CN-LUPIN PHARMACEUTICALS INC.-2022-05805

PATIENT
  Age: 18 Year
  Sex: Female

DRUGS (9)
  1. LINEZOLID [Suspect]
     Active Substance: LINEZOLID
     Indication: Intestinal obstruction
     Dosage: 600 MG, QD
     Route: 042
  2. LINEZOLID [Suspect]
     Active Substance: LINEZOLID
     Dosage: 600 MG, QD
     Route: 048
  3. LINEZOLID [Suspect]
     Active Substance: LINEZOLID
     Dosage: 300 MG, QD (DOSE REDUCED)
     Route: 042
  4. PARA-AMINOSALICYLIC ACID [Concomitant]
     Active Substance: AMINOSALICYLIC ACID
     Indication: Pulmonary tuberculosis
     Dosage: 08 GRAM, BID
     Route: 048
  5. PARA-AMINOSALICYLIC ACID [Concomitant]
     Active Substance: AMINOSALICYLIC ACID
     Indication: Intestinal tuberculosis
  6. CAPREOMYCIN [Concomitant]
     Active Substance: CAPREOMYCIN
     Indication: Intestinal obstruction
     Dosage: 750 MG, QD
     Route: 042
  7. MOXIFLOXACIN [Concomitant]
     Active Substance: MOXIFLOXACIN
     Indication: Intestinal obstruction
     Dosage: 400 MG, QD
     Route: 048
  8. PROTIONAMIDE [Concomitant]
     Active Substance: PROTIONAMIDE
     Indication: Intestinal obstruction
     Dosage: 600 MG, TID
     Route: 048
  9. PYRAZINAMIDE [Concomitant]
     Active Substance: PYRAZINAMIDE
     Indication: Intestinal obstruction
     Dosage: 1500 MG, TID
     Route: 048

REACTIONS (1)
  - Platelet count decreased [Unknown]
